FAERS Safety Report 24392987 (Version 1)
Quarter: 2024Q4

REPORT INFORMATION
  Report Type: Spontaneous
  Country: US (occurrence: None)
  Receive Date: 20241003
  Receipt Date: 20241003
  Transmission Date: 20250115
  Serious: Yes (Life-Threatening, Hospitalization)
  Sender: Public
  Company Number: None

PATIENT
  Age: 79 Year
  Sex: Male
  Weight: 89 kg

DRUGS (10)
  1. EMPAGLIFLOZIN [Suspect]
     Active Substance: EMPAGLIFLOZIN
     Indication: Type 2 diabetes mellitus
     Dosage: FREQUENCY : DAILY;?
     Route: 048
     Dates: end: 20240921
  2. aspirin 81 mg po daily [Concomitant]
  3. atorvastatin 40 mg po daily [Concomitant]
  4. cholecalciferol 25 mcg po daily [Concomitant]
  5. donepezil 5 mg po daily [Concomitant]
  6. fish oil 500 mg po daily [Concomitant]
  7. fosinopril 40 mg po daily [Concomitant]
  8. insulin glargine 15 units SubQ daily [Concomitant]
  9. metformin 1,000 mg po BID [Concomitant]
  10. omeprazole 20 mg po daily [Concomitant]

REACTIONS (1)
  - Fournier^s gangrene [None]

NARRATIVE: CASE EVENT DATE: 20240913
